FAERS Safety Report 25959404 (Version 2)
Quarter: 2025Q4

REPORT INFORMATION
  Report Type: Spontaneous
  Country: CN (occurrence: CN)
  Receive Date: 20251025
  Receipt Date: 20251105
  Transmission Date: 20260118
  Serious: Yes (Hospitalization, Other)
  Sender: MSN LABORATORIES PRIVATE LIMITED
  Company Number: CN-MSNLABS-2025MSNLIT03068

PATIENT

DRUGS (9)
  1. SILDENAFIL [Suspect]
     Active Substance: SILDENAFIL
     Indication: Pulmonary hypertension
     Dosage: FOR EVERY 8 HOURS
     Route: 065
     Dates: start: 202405, end: 2025
  2. SILDENAFIL [Suspect]
     Active Substance: SILDENAFIL
     Indication: Skin ulcer
  3. AMBRISENTAN [Suspect]
     Active Substance: AMBRISENTAN
     Indication: Pulmonary hypertension
     Route: 065
     Dates: start: 2024, end: 2025
  4. AMBRISENTAN [Suspect]
     Active Substance: AMBRISENTAN
     Indication: Skin ulcer
  5. METHYLPREDNISOLONE [Concomitant]
     Active Substance: METHYLPREDNISOLONE
     Dosage: 40 MG/D INTRAVENOUSLY
     Route: 042
     Dates: start: 2024
  6. PREDNISONE [Concomitant]
     Active Substance: PREDNISONE
     Indication: Pulmonary hypertension
     Route: 065
     Dates: start: 202405, end: 2024
  7. PREDNISONE [Concomitant]
     Active Substance: PREDNISONE
     Route: 065
     Dates: start: 202405
  8. CYCLOSPORINE [Concomitant]
     Active Substance: CYCLOSPORINE
     Indication: Pulmonary hypertension
     Dosage: 100 MG IN THE MORNING AND 50 MG IN THE EVENING
     Route: 065
     Dates: start: 202405
  9. MYCOPHENOLATE MOFETIL [Concomitant]
     Active Substance: MYCOPHENOLATE MOFETIL
     Dosage: FOR EVERY 8 HOURS
     Route: 065
     Dates: start: 2024

REACTIONS (1)
  - Meigs^ syndrome [Recovered/Resolved]

NARRATIVE: CASE EVENT DATE: 20250101
